FAERS Safety Report 9464680 (Version 2)
Quarter: 2013Q4

REPORT INFORMATION
  Report Type: Report from Study
  Country: CA (occurrence: CA)
  Receive Date: 20130819
  Receipt Date: 20131108
  Transmission Date: 20140711
  Serious: Yes (Hospitalization)
  Sender: FDA-Public Use
  Company Number: CA-SANOFI-AVENTIS-2013SA081689

PATIENT
  Age: 60 Year
  Sex: Female

DRUGS (13)
  1. DOCETAXEL [Suspect]
     Indication: BREAST CANCER
     Dosage: FORM: SOLUTION INTRAVENOUS
     Route: 042
     Dates: start: 20011228, end: 20020320
  2. CARBOPLATIN [Suspect]
     Indication: BREAST CANCER
     Dosage: FORM: SOLUTION INTRAVENOUS
     Route: 042
     Dates: start: 20020227, end: 20020227
  3. CARBOPLATIN [Suspect]
     Indication: BREAST CANCER
     Route: 042
     Dates: start: 20020320, end: 20020320
  4. CISPLATIN [Suspect]
     Indication: BREAST CANCER
     Route: 042
     Dates: start: 20011228, end: 20020206
  5. HERCEPTIN [Concomitant]
     Indication: BREAST CANCER
     Dosage: FORM VIALS
     Route: 042
     Dates: start: 20011227, end: 20011227
  6. HERCEPTIN [Concomitant]
     Indication: BREAST CANCER
     Route: 042
     Dates: end: 20020403
  7. HERCEPTIN [Concomitant]
     Indication: BREAST CANCER
     Route: 042
     Dates: start: 20020327, end: 20020327
  8. HERCEPTIN [Concomitant]
     Indication: BREAST CANCER
     Route: 042
     Dates: start: 20020403, end: 20020403
  9. HERCEPTIN [Concomitant]
     Indication: BREAST CANCER
     Route: 042
     Dates: start: 200201, end: 20020320
  10. ENALAPRIL [Concomitant]
  11. HYDROCHLOROTHIAZIDE [Concomitant]
  12. ZOCOR [Concomitant]
  13. ZOLOFT [Concomitant]

REACTIONS (13)
  - Blood chloride decreased [Unknown]
  - Blood sodium decreased [Unknown]
  - Blood potassium decreased [Unknown]
  - Amnesia [Recovered/Resolved]
  - Areflexia [Recovered/Resolved]
  - Ataxia [Recovering/Resolving]
  - Nervous system disorder [Recovered/Resolved]
  - Speech disorder [Recovered/Resolved]
  - Gait disturbance [Recovered/Resolved]
  - Febrile neutropenia [Recovered/Resolved]
  - Asthenia [Recovered/Resolved]
  - Neuropathy peripheral [Recovered/Resolved]
  - Headache [Recovered/Resolved]
